FAERS Safety Report 16167294 (Version 1)
Quarter: 2019Q2

REPORT INFORMATION
  Report Type: Spontaneous
  Country: IN (occurrence: IN)
  Receive Date: 20190408
  Receipt Date: 20190408
  Transmission Date: 20190711
  Serious: Yes (Other)
  Sender: FDA-Public Use
  Company Number: IN-BAUSCH-BL-2019-010335

PATIENT
  Age: 61 Year
  Sex: Female

DRUGS (1)
  1. DEXAMETHASONE. [Suspect]
     Active Substance: DEXAMETHASONE
     Indication: ENCEPHALITIS AUTOIMMUNE
     Route: 065

REACTIONS (2)
  - Condition aggravated [Recovering/Resolving]
  - Delirium [Recovering/Resolving]
